FAERS Safety Report 6516311-X (Version None)
Quarter: 2009Q4

REPORT INFORMATION
  Report Type: 
  Country: None (occurrence: None)
  Receive Date: 20091223
  Receipt Date: 20091217
  Transmission Date: 20100525
  Serious: Yes (Other)
  Sender: FDA-Public Use
  Company Number: ES-BRISTOL-MYERS SQUIBB COMPANY-14898423

PATIENT
  Age: 49 Year
  Sex: Female

DRUGS (2)
  1. SUSTIVA [Suspect]
     Indication: PROPHYLAXIS AGAINST HIV INFECTION
     Route: 048
     Dates: start: 20090309, end: 20090404
  2. TRUVADA [Suspect]
     Indication: PROPHYLAXIS AGAINST HIV INFECTION
     Dosage: 1 DOSAGE FORM: 200MG EMTRICITABINE + 245MG TENOFOVIR DISOPROXIL FUMARATE
     Route: 048
     Dates: start: 20090309, end: 20090404

REACTIONS (4)
  - LEUKOPENIA [None]
  - NAUSEA [None]
  - PYREXIA [None]
  - VOMITING [None]
